FAERS Safety Report 15957825 (Version 1)
Quarter: 2019Q1

REPORT INFORMATION
  Report Type: Spontaneous
  Country: HU (occurrence: HU)
  Receive Date: 20190213
  Receipt Date: 20190213
  Transmission Date: 20190417
  Serious: Yes (Other)
  Sender: FDA-Public Use
  Company Number: HU-MYLANLABS-2019M1013640

PATIENT
  Age: 26 Year
  Sex: Female

DRUGS (5)
  1. EPINEPHRINE. [Suspect]
     Active Substance: EPINEPHRINE
     Indication: DENTAL LOCAL ANAESTHESIA
     Route: 002
  2. ARTICAINE HYDROCHLORIDE [Suspect]
     Active Substance: ARTICAINE HYDROCHLORIDE
     Dosage: FOR N. BUCCAL AREA, SHE WAS ADMINISTERED WITH A 0.2ML SOLUTION
     Route: 065
  3. ARTICAINE HYDROCHLORIDE [Suspect]
     Active Substance: ARTICAINE HYDROCHLORIDE
     Dosage: 0.2 MILLILITER
     Route: 050
  4. ARTICAINE HYDROCHLORIDE [Suspect]
     Active Substance: ARTICAINE HYDROCHLORIDE
     Indication: DENTAL LOCAL ANAESTHESIA
     Route: 002
  5. ARTICAINE HYDROCHLORIDE [Suspect]
     Active Substance: ARTICAINE HYDROCHLORIDE
     Dosage: FOR THE CONCURRENT BLOCKADE OF N. ALVEOLAR INFERIOR, N. LINGUAL
     Route: 065

REACTIONS (3)
  - Diplopia [Recovered/Resolved]
  - Ophthalmoplegia [Recovered/Resolved]
  - Eye movement disorder [Recovered/Resolved]
